FAERS Safety Report 8267656-7 (Version None)
Quarter: 2012Q2

REPORT INFORMATION
  Report Type: 
  Country: None (occurrence: None)
  Receive Date: 20120409
  Receipt Date: 20120407
  Transmission Date: 20120825
  Serious: Yes (Other)
  Sender: FDA-Public Use
  Company Number: US-PFIZER INC-2012087563

PATIENT
  Sex: Female

DRUGS (2)
  1. IBUPROFEN (ADVIL) [Suspect]
     Dosage: UNK
     Route: 048
  2. IBUPROFEN (ADVIL) [Suspect]
     Dosage: TWO TABLETS
     Route: 048
     Dates: start: 20120407

REACTIONS (2)
  - CHOKING [None]
  - HAEMOPTYSIS [None]
